FAERS Safety Report 10079013 (Version 2)
Quarter: 2014Q2

REPORT INFORMATION
  Report Type: Spontaneous
  Country: NL (occurrence: NL)
  Receive Date: 20140415
  Receipt Date: 20140506
  Transmission Date: 20141212
  Serious: Yes (Other)
  Sender: FDA-Public Use
  Company Number: NL-AMGEN-NLDSP2013092246

PATIENT
  Age: 81 Year
  Sex: Female

DRUGS (1)
  1. ARANESP [Suspect]
     Indication: MYELODYSPLASTIC SYNDROME
     Dosage: 300 MUG, QWK
     Route: 058
     Dates: start: 20130417, end: 20130815

REACTIONS (3)
  - Breast cancer [Unknown]
  - Pleural neoplasm [Unknown]
  - Haemoglobin decreased [Unknown]
